FAERS Safety Report 10925288 (Version 1)
Quarter: 2015Q1

REPORT INFORMATION
  Report Type: Spontaneous
  Country: US (occurrence: None)
  Receive Date: 20150129
  Receipt Date: 20150129
  Transmission Date: 20150721
  Serious: Yes (Other)
  Sender: FDA-Public Use
  Company Number: 2014007943

PATIENT
  Sex: Male
  Weight: 77 kg

DRUGS (1)
  1. KEPPRA [Suspect]
     Active Substance: LEVETIRACETAM
     Indication: PRODUCT USED FOR UNKNOWN INDICATION
     Dosage: 2000 MG, 2X/DAY (BID), TAKING FOR YEARS
     Dates: end: 2014

REACTIONS (5)
  - Seizure [None]
  - Generalised tonic-clonic seizure [None]
  - Overdose [None]
  - Complex partial seizures [None]
  - Off label use [None]
